FAERS Safety Report 7361331-9 (Version None)
Quarter: 2011Q1

REPORT INFORMATION
  Report Type: 
  Country: None (occurrence: None)
  Receive Date: 20110318
  Receipt Date: 20110315
  Transmission Date: 20110831
  Serious: Yes (Hospitalization, Other)
  Sender: FDA-Public Use
  Company Number: B0704417A

PATIENT
  Sex: Female

DRUGS (4)
  1. ZOPICLON [Concomitant]
     Indication: SLEEP DISORDER
     Route: 065
     Dates: start: 19900101
  2. DIOVAN [Concomitant]
     Indication: HYPERTENSION
     Route: 065
  3. CALCI CHEW [Concomitant]
     Indication: OSTEOPOROSIS
     Route: 065
  4. SEROXAT [Suspect]
     Indication: DEPRESSION
     Dosage: 20MG PER DAY
     Route: 065
     Dates: start: 20091101, end: 20101101

REACTIONS (2)
  - DIARRHOEA [None]
  - COLITIS COLLAGENOUS [None]
